FAERS Safety Report 9428262 (Version 1)
Quarter: 2013Q3

REPORT INFORMATION
  Report Type: Spontaneous
  Country: US (occurrence: US)
  Receive Date: 20130730
  Receipt Date: 20130730
  Transmission Date: 20140515
  Serious: No
  Sender: FDA-Public Use
  Company Number: US-GLAXOSMITHKLINE-A1025135B

PATIENT
  Sex: Male

DRUGS (4)
  1. MOMETASONE FUROATE [Suspect]
     Route: 064
  2. MOMETASONE FUROATE [Suspect]
     Indication: ECZEMA
     Route: 061
  3. ZANTAC [Suspect]
     Indication: ILL-DEFINED DISORDER
     Route: 048
  4. OMEPRAZOLE [Suspect]
     Indication: ILL-DEFINED DISORDER
     Route: 048

REACTIONS (9)
  - Developmental delay [Unknown]
  - Food allergy [Unknown]
  - Allergy to animal [Unknown]
  - Asthma [Unknown]
  - Sensory disturbance [Unknown]
  - Abnormal behaviour [Unknown]
  - Ill-defined disorder [Unknown]
  - Eczema [Unknown]
  - Foetal exposure during pregnancy [Unknown]
